FAERS Safety Report 26186742 (Version 2)
Quarter: 2025Q4

REPORT INFORMATION
  Report Type: Report from Study
  Country: US (occurrence: US)
  Receive Date: 20251222
  Receipt Date: 20251229
  Transmission Date: 20260117
  Serious: Yes (Hospitalization)
  Sender: EISAI
  Company Number: US-Eisai-EC-2025-202322

PATIENT
  Age: 75 Year
  Sex: Female
  Weight: 75.6 kg

DRUGS (4)
  1. LENVIMA [Suspect]
     Active Substance: LENVATINIB
     Indication: Endometrial cancer
     Route: 048
     Dates: start: 202508, end: 2025
  2. LENVIMA [Suspect]
     Active Substance: LENVATINIB
     Route: 048
     Dates: start: 2025, end: 2025
  3. LENVIMA [Suspect]
     Active Substance: LENVATINIB
     Route: 048
     Dates: start: 2025, end: 20251110
  4. KEYTRUDA [Suspect]
     Active Substance: PEMBROLIZUMAB
     Indication: Endometrial cancer
     Route: 042
     Dates: start: 20250811, end: 20251028

REACTIONS (3)
  - Hallucination [Unknown]
  - Encephalopathy [Recovering/Resolving]
  - Mental status changes [Recovering/Resolving]

NARRATIVE: CASE EVENT DATE: 20250101
